FAERS Safety Report 6505955-7 (Version None)
Quarter: 2009Q4

REPORT INFORMATION
  Report Type: 
  Country: None (occurrence: None)
  Receive Date: 20091218
  Receipt Date: 20091215
  Transmission Date: 20100525
  Serious: Yes (Other)
  Sender: FDA-Public Use
  Company Number: JP-BAYER-200912764BYL

PATIENT
  Age: 68 Year
  Sex: Female
  Weight: 48 kg

DRUGS (8)
  1. NEXAVAR [Suspect]
     Indication: RENAL CELL CARCINOMA
     Dosage: TOTAL DAILY DOSE: 400 MG  UNIT DOSE: 200 MG
     Route: 048
     Dates: start: 20090622, end: 20090722
  2. NEXAVAR [Suspect]
     Dosage: UNIT DOSE: 200 MG
     Route: 048
     Dates: start: 20090819
  3. OIF [Suspect]
     Indication: DRUG USE FOR UNKNOWN INDICATION
     Dosage: TOTAL DAILY DOSE: 5 MIU  UNIT DOSE: 5 MIU
     Route: 065
     Dates: start: 20090622
  4. INTERFERON ALFA [Concomitant]
     Route: 065
  5. TAKEPRON [Concomitant]
     Dosage: UNIT DOSE: 15 MG
     Route: 048
  6. DIOVAN [Concomitant]
     Dosage: UNIT DOSE: 80 MG
     Route: 048
     Dates: start: 20080701
  7. WARFARIN SODIUM [Concomitant]
     Indication: PROSTHETIC VESSEL IMPLANTATION
     Dosage: UNIT DOSE: 3.5 MG
     Route: 048
     Dates: start: 20090823
  8. URSO 250 [Concomitant]
     Route: 048
     Dates: start: 20090902

REACTIONS (2)
  - HEPATIC FUNCTION ABNORMAL [None]
  - PALMAR-PLANTAR ERYTHRODYSAESTHESIA SYNDROME [None]
